FAERS Safety Report 7197870-3 (Version None)
Quarter: 2010Q4

REPORT INFORMATION
  Report Type: 
  Country: None (occurrence: None)
  Receive Date: 20101227
  Receipt Date: 20101213
  Transmission Date: 20110411
  Serious: Yes (Hospitalization)
  Sender: FDA-Public Use
  Company Number: FR-ROCHE-731724

PATIENT
  Sex: Male
  Weight: 73 kg

DRUGS (4)
  1. MYCOPHENOLATE MOFETIL [Suspect]
     Dosage: DOSE REPORTED: 500 MG X 6/DAY AND 250 MG/DAY
     Route: 048
     Dates: start: 20100514
  2. CERTICAN [Suspect]
     Dosage: DOSE REPORTED: 0.5 MG X 3DAY, 225 MG PER DAY, FREQUENCY: THRICE
     Route: 048
     Dates: start: 20100701
  3. SOLUPRED [Suspect]
     Dosage: 5 MG X 2/DAY
     Route: 048
     Dates: start: 20100514
  4. IRON [Concomitant]
     Dosage: SUPPLEMENTATION

REACTIONS (4)
  - BLOOD CREATININE INCREASED [None]
  - DIARRHOEA [None]
  - PYREXIA [None]
  - TRANSPLANT REJECTION [None]
